FAERS Safety Report 6193946-8 (Version None)
Quarter: 2009Q2

REPORT INFORMATION
  Report Type: 
  Country: None (occurrence: None)
  Receive Date: 20090518
  Receipt Date: 20090507
  Transmission Date: 20091009
  Serious: Yes (Hospitalization)
  Sender: FDA-Public Use
  Company Number: PHHY2009MX16584

PATIENT
  Sex: Female

DRUGS (3)
  1. TEGRETOL [Suspect]
     Indication: EPILEPSY
     Dosage: 2 DF, QD
     Route: 048
     Dates: start: 20000101, end: 20090414
  2. TEGRETOL [Suspect]
     Dosage: TWO  PILLS MORE OF USUAL
  3. KEPPRA [Concomitant]
     Indication: EPILEPSY
     Dosage: 4 DF, QD
     Dates: start: 20000101

REACTIONS (5)
  - ABASIA [None]
  - CONVULSION [None]
  - DRUG TOXICITY [None]
  - MEDICATION ERROR [None]
  - VISUAL ACUITY REDUCED [None]
